FAERS Safety Report 8566908-0 (Version None)
Quarter: 2012Q3

REPORT INFORMATION
  Report Type: 
  Country: None (occurrence: None)
  Receive Date: 20120803
  Receipt Date: 20110822
  Transmission Date: 20120928
  Serious: No
  Sender: FDA-Public Use
  Company Number: US-ABBOTT-11P-163-0848192-00

PATIENT
  Sex: Male
  Weight: 78.088 kg

DRUGS (13)
  1. ASPIRIN [Concomitant]
     Indication: PROPHYLAXIS
  2. CRESTOR [Concomitant]
     Indication: BLOOD CHOLESTEROL INCREASED
  3. ASPIRIN [Concomitant]
     Indication: CARDIAC DISORDER
  4. NIASPAN [Suspect]
     Indication: LOW DENSITY LIPOPROTEIN INCREASED
     Dosage: 2000 MG, DAILY
     Dates: start: 20110501
  5. METFORMIN HYDROCHLORIDE [Concomitant]
     Indication: DIABETES MELLITUS
  6. STOOL SOFTENER [Concomitant]
     Indication: CONSTIPATION
  7. METOPROLOL TARTRATE [Concomitant]
     Indication: HYPERTENSION
  8. LOSARTAN POTASSIUM [Concomitant]
     Indication: CARDIAC DISORDER
  9. EFFIENT [Concomitant]
     Indication: STENT PLACEMENT
  10. M.V.I. [Concomitant]
     Indication: VITAMIN SUPPLEMENTATION
  11. NIASPAN [Suspect]
     Indication: LOW DENSITY LIPOPROTEIN INCREASED
  12. BICTOZA [Concomitant]
     Indication: DIABETES MELLITUS
  13. GLUCOSAMINE CHONDROITIN [Concomitant]
     Indication: ARTHROPATHY

REACTIONS (2)
  - PARAESTHESIA [None]
  - FLUSHING [None]
